FAERS Safety Report 14044636 (Version 2)
Quarter: 2017Q4

REPORT INFORMATION
  Report Type: Spontaneous
  Country: US (occurrence: US)
  Receive Date: 20171005
  Receipt Date: 20171005
  Transmission Date: 20180321
  Serious: Yes (Hospitalization)
  Sender: FDA-Public Use
  Company Number: US-JNJCP-30000405518

PATIENT
  Sex: Male
  Weight: 88 kg

DRUGS (2)
  1. CENTRUM [Concomitant]
     Active Substance: VITAMINS
     Indication: PRODUCT USED FOR UNKNOWN INDICATION
  2. AVEENO ECZEMA THERAPY BATH TREATMENT [Suspect]
     Active Substance: OATMEAL
     Indication: DRY SKIN
     Dosage: 1 POWDER AMOUNT, AS NEEDED
     Route: 061
     Dates: start: 20151207, end: 20151207

REACTIONS (3)
  - Accidental exposure to product [Recovered/Resolved]
  - Ear infection [Recovered/Resolved]
  - Headache [Recovered/Resolved]

NARRATIVE: CASE EVENT DATE: 20151209
